FAERS Safety Report 11940494 (Version 1)
Quarter: 2016Q1

REPORT INFORMATION
  Report Type: Spontaneous
  Country: US (occurrence: US)
  Receive Date: 20160122
  Receipt Date: 20160122
  Transmission Date: 20160526
  Serious: No
  Sender: FDA-Public Use
  Company Number: US-DYAX CORP.-2015DX000437

PATIENT
  Age: 44 Year
  Sex: Female

DRUGS (3)
  1. KALBITOR [Suspect]
     Active Substance: ECALLANTIDE
     Route: 058
     Dates: start: 20150918, end: 20150918
  2. KALBITOR [Suspect]
     Active Substance: ECALLANTIDE
     Route: 058
  3. KALBITOR [Suspect]
     Active Substance: ECALLANTIDE
     Indication: HEREDITARY ANGIOEDEMA
     Route: 058
     Dates: start: 20151005, end: 20151005

REACTIONS (4)
  - Nasal congestion [Unknown]
  - Bronchitis [Unknown]
  - Sinusitis [Unknown]
  - Dyspnoea [Unknown]

NARRATIVE: CASE EVENT DATE: 20151003
